FAERS Safety Report 7640038-4 (Version None)
Quarter: 2011Q3

REPORT INFORMATION
  Report Type: 
  Country: None (occurrence: None)
  Receive Date: 20110727
  Receipt Date: 20110718
  Transmission Date: 20111222
  Serious: Yes (Hospitalization, Other)
  Sender: FDA-Public Use
  Company Number: US-ASTRAZENECA-2011SE42752

PATIENT
  Sex: Female

DRUGS (5)
  1. CLONOPIN [Concomitant]
  2. SEROQUEL XR [Suspect]
     Indication: DEPRESSION
     Route: 048
     Dates: start: 20090101
  3. SEROQUEL XR [Suspect]
     Indication: BIPOLAR DISORDER
     Route: 048
     Dates: start: 20090101
  4. DEPAKOTE [Concomitant]
  5. TRAZODONE HCL [Concomitant]

REACTIONS (2)
  - RENAL FAILURE [None]
  - HYPOTENSION [None]
